FAERS Safety Report 5844680-2 (Version None)
Quarter: 2008Q3

REPORT INFORMATION
  Report Type: 
  Country: None (occurrence: None)
  Receive Date: 20080812
  Receipt Date: 20080806
  Transmission Date: 20090109
  Serious: Yes (Hospitalization)
  Sender: FDA-Public Use
  Company Number: TCI2007A06951

PATIENT
  Age: 67 Year
  Sex: Female

DRUGS (5)
  1. LANSOPRAZOLE [Suspect]
     Indication: REFLUX OESOPHAGITIS
     Dosage: 15 MG (15 MG, 1 IN 1 D) PER ORAL
     Route: 048
     Dates: start: 20060516, end: 20070919
  2. PHENOBAL (PHENOBARBITAL) (POWDER) [Suspect]
     Indication: EPILEPSY
     Dosage: 0.4 G (0.4 G, 1 IN 1 D) PER ORAL
     Route: 048
     Dates: end: 20070919
  3. GASMOTIN (MOSAPRIDE CITRATE) (TABLETS) [Concomitant]
  4. CEREKINON (TRIMEBUTINE MALEATE) (TABLETS) [Concomitant]
  5. PURSENNID (SENNA ALEXANDRINA LEAF) (TABLETS) [Concomitant]

REACTIONS (8)
  - ANAEMIA MACROCYTIC [None]
  - CATHETER SITE INFLAMMATION [None]
  - HISTIOCYTOSIS HAEMATOPHAGIC [None]
  - NEUTROPENIA [None]
  - PNEUMONIA [None]
  - PYREXIA [None]
  - VITAMIN B12 DEFICIENCY [None]
  - WHITE BLOOD CELL COUNT DECREASED [None]
